FAERS Safety Report 22276715 (Version 1)
Quarter: 2023Q2

REPORT INFORMATION
  Report Type: Report from Study
  Country: DE (occurrence: DE)
  Receive Date: 20230503
  Receipt Date: 20230503
  Transmission Date: 20230721
  Serious: Yes (Hospitalization)
  Sender: FDA-Public Use
  Company Number: DE-CELLTRION INC.-2023DE009099

PATIENT

DRUGS (10)
  1. TRUXIMA [Suspect]
     Active Substance: RITUXIMAB-ABBS
     Indication: Rheumatoid arthritis
     Dosage: 1000 MILLIGRAM
     Dates: start: 201709
  2. MABTHERA [Suspect]
     Active Substance: RITUXIMAB
     Indication: Rheumatoid arthritis
     Dosage: 1000 MILLIGRAM
     Dates: start: 201702
  3. METHOTREXATE [Suspect]
     Active Substance: METHOTREXATE
     Indication: Rheumatoid arthritis
     Dosage: 7.5 MILLIGRAM
     Dates: start: 20190930
  4. METHOTREXATE [Suspect]
     Active Substance: METHOTREXATE
     Dosage: 5 MILLIGRAM
     Dates: start: 20220303
  5. METHOTREXATE [Suspect]
     Active Substance: METHOTREXATE
     Dosage: 10 MILLIGRAM
     Dates: start: 20200217
  6. METHOTREXATE [Suspect]
     Active Substance: METHOTREXATE
     Dosage: 5 MILLIGRAM
     Dates: start: 20200821
  7. METHOTREXATE [Suspect]
     Active Substance: METHOTREXATE
     Dosage: 10 MILLIGRAM
     Dates: start: 20180801
  8. METHOTREXATE [Suspect]
     Active Substance: METHOTREXATE
     Dosage: 5 MILLIGRAM
     Dates: start: 20210324
  9. METHOTREXATE [Suspect]
     Active Substance: METHOTREXATE
     Dosage: 5 MILLIGRAM
     Dates: start: 20210909
  10. METHOTREXATE [Suspect]
     Active Substance: METHOTREXATE
     Dosage: 10 MILLIGRAM
     Dates: start: 20190326

REACTIONS (3)
  - Anaemia [Unknown]
  - Sarcopenia [Unknown]
  - Tremor [Unknown]

NARRATIVE: CASE EVENT DATE: 20211011
